FAERS Safety Report 7914913-7 (Version None)
Quarter: 2011Q4

REPORT INFORMATION
  Report Type: 
  Country: None (occurrence: None)
  Receive Date: 20111115
  Receipt Date: 20111111
  Transmission Date: 20120403
  Serious: Yes (Hospitalization, Other)
  Sender: FDA-Public Use
  Company Number: CA-PFIZER INC-2011276990

PATIENT
  Age: 46 Year
  Sex: Female

DRUGS (3)
  1. ALESSE [Suspect]
     Dosage: UNK
  2. CELEXA [Concomitant]
     Dosage: UNK
  3. SEROQUEL [Concomitant]
     Dosage: UNK

REACTIONS (3)
  - ALCOHOL ABUSE [None]
  - MOOD SWINGS [None]
  - ALCOHOLISM [None]
